FAERS Safety Report 18379764 (Version 2)
Quarter: 2020Q4

REPORT INFORMATION
  Report Type: Spontaneous
  Country: US (occurrence: US)
  Receive Date: 20201013
  Receipt Date: 20201105
  Transmission Date: 20210114
  Serious: No
  Sender: FDA-Public Use
  Company Number: US-BAUSCH-BL-2020-027683

PATIENT
  Age: 66 Year
  Sex: Female

DRUGS (4)
  1. TOBRAMYCIN AND DEXAMETHASONE [Suspect]
     Active Substance: DEXAMETHASONE\TOBRAMYCIN
     Indication: BLEPHARITIS
     Dosage: 0.3%/0.1%; 1 DROP IN THE LEFT EYE ONCE DAILY AND 1 DROP IN THE RIGHT EYE FOUR TIMES DAILY
     Route: 047
     Dates: start: 202006, end: 2020
  2. REFRESHE [Concomitant]
     Indication: DRY EYE
  3. PRESERVISION AREDS 2 [Concomitant]
     Active Substance: MINERALS\VITAMINS
     Indication: PRODUCT USED FOR UNKNOWN INDICATION
     Dosage: MINIGELS ?HAS BEEN TAKING FOR A COUPLE YEARS NOW
     Route: 065
     Dates: start: 2018
  4. DOXYCYCLINE. [Concomitant]
     Active Substance: DOXYCYCLINE
     Indication: PRODUCT USED FOR UNKNOWN INDICATION
     Route: 048

REACTIONS (4)
  - Eye irritation [Recovered/Resolved]
  - Eye disorder [Not Recovered/Not Resolved]
  - Photophobia [Not Recovered/Not Resolved]
  - Perfume sensitivity [Not Recovered/Not Resolved]

NARRATIVE: CASE EVENT DATE: 2020
